FAERS Safety Report 10178782 (Version 1)
Quarter: 2014Q2

REPORT INFORMATION
  Report Type: Spontaneous
  Country: US (occurrence: US)
  Receive Date: 20140519
  Receipt Date: 20140519
  Transmission Date: 20141212
  Serious: No
  Sender: FDA-Public Use
  Company Number: US-BIOGENIDEC-2014BI045399

PATIENT
  Age: 38 Year
  Sex: Female

DRUGS (22)
  1. AVONEX [Suspect]
     Indication: RELAPSING-REMITTING MULTIPLE SCLEROSIS
     Route: 030
  2. AVONEX [Suspect]
     Indication: RELAPSING-REMITTING MULTIPLE SCLEROSIS
     Route: 030
     Dates: start: 20081001
  3. AVONEX [Suspect]
     Indication: RELAPSING-REMITTING MULTIPLE SCLEROSIS
     Route: 030
     Dates: start: 20081027
  4. COPAXONE [Concomitant]
     Indication: RELAPSING-REMITTING MULTIPLE SCLEROSIS
  5. REBIF [Concomitant]
     Indication: RELAPSING-REMITTING MULTIPLE SCLEROSIS
  6. RITALIN [Concomitant]
     Route: 048
  7. CELEXA [Concomitant]
     Route: 048
  8. BACLOFEN [Concomitant]
     Route: 048
  9. TRAMADOL HCL [Concomitant]
     Route: 048
  10. IBUPROFEN [Concomitant]
     Route: 048
  11. NORTRIPTYLINE [Concomitant]
     Route: 048
  12. TRAMADOL [Concomitant]
  13. CITALOPRAM [Concomitant]
     Route: 048
  14. GABAPENTIN [Concomitant]
     Route: 048
  15. MELOXICAM [Concomitant]
     Route: 048
  16. DOXYCYCLINE [Concomitant]
     Route: 048
  17. VENFLAXINE [Concomitant]
     Route: 048
  18. CRYSELLE [Concomitant]
     Route: 048
  19. CYCLOBENZAPRINE [Concomitant]
     Route: 048
  20. DOC-Q-LACE [Concomitant]
  21. CALCIUM [Concomitant]
  22. AMPYRA [Concomitant]
     Route: 048

REACTIONS (6)
  - Gait disturbance [Unknown]
  - Multiple sclerosis relapse [Unknown]
  - Injection site reaction [Unknown]
  - Rash [Unknown]
  - Suicidal ideation [Unknown]
  - Depression [Unknown]
